FAERS Safety Report 13165945 (Version 1)
Quarter: 2017Q1

REPORT INFORMATION
  Report Type: Spontaneous
  Country: US (occurrence: US)
  Receive Date: 20170131
  Receipt Date: 20170131
  Transmission Date: 20170428
  Serious: No
  Sender: FDA-Public Use
  Company Number: US-ALEXION PHARMACEUTICALS INC.-A201700696

PATIENT
  Sex: Male

DRUGS (1)
  1. STRENSIQ [Suspect]
     Active Substance: ASFOTASE ALFA
     Indication: HYPOPHOSPHATASIA
     Route: 058

REACTIONS (7)
  - Nausea [Unknown]
  - Pain [Unknown]
  - Cold sweat [Unknown]
  - Body temperature abnormal [Unknown]
  - Feeling hot [Unknown]
  - Flushing [Unknown]
  - Chills [Unknown]
